FAERS Safety Report 5688999-7 (Version None)
Quarter: 2008Q1

REPORT INFORMATION
  Report Type: 
  Country: None (occurrence: None)
  Receive Date: 20080331
  Receipt Date: 20080320
  Transmission Date: 20080703
  Serious: Yes (Other)
  Sender: FDA-Public Use
  Company Number: A0717672A

PATIENT
  Age: 59 Year
  Sex: Male

DRUGS (3)
  1. LAMICTAL [Suspect]
     Indication: BIPOLAR DISORDER
     Dosage: 25MG SEE DOSAGE TEXT
     Route: 048
     Dates: start: 20080217, end: 20080317
  2. LEXAPRO [Concomitant]
  3. ATENOLOL [Concomitant]

REACTIONS (12)
  - ADVERSE EVENT [None]
  - ANXIETY [None]
  - CHILLS [None]
  - CLUMSINESS [None]
  - CONVULSION [None]
  - DIZZINESS [None]
  - HEADACHE [None]
  - NAUSEA [None]
  - PYREXIA [None]
  - TREMOR [None]
  - VOMITING [None]
  - WITHDRAWAL SYNDROME [None]
